FAERS Safety Report 9463020 (Version 1)
Quarter: 2013Q3

REPORT INFORMATION
  Report Type: Spontaneous
  Country: CH (occurrence: CH)
  Receive Date: 20130816
  Receipt Date: 20130816
  Transmission Date: 20140515
  Serious: Yes (Hospitalization)
  Sender: FDA-Public Use
  Company Number: CH-ROCHE-1261908

PATIENT
  Age: 73 Year
  Sex: Female

DRUGS (13)
  1. BONVIVA [Suspect]
     Indication: OSTEOPOROTIC FRACTURE
     Route: 042
     Dates: start: 201010, end: 20130327
  2. BONVIVA [Suspect]
     Route: 042
     Dates: start: 20120512
  3. SURMONTIL [Concomitant]
     Route: 065
  4. CALCIMAGON-D3 [Concomitant]
     Route: 048
  5. PANTOZOL (SWITZERLAND) [Concomitant]
     Route: 048
  6. SPIRIVA [Concomitant]
     Dosage: RESPIRATORY INHALATION
     Route: 065
  7. TOREM TABLETS [Concomitant]
     Route: 048
  8. BILOL [Concomitant]
     Route: 048
  9. CARDURA [Concomitant]
     Route: 048
  10. PRAMIPEXOLE [Concomitant]
     Route: 048
     Dates: end: 201304
  11. ACTOS [Concomitant]
     Route: 048
     Dates: end: 201304
  12. DIAMICRON [Concomitant]
     Route: 048
     Dates: end: 201304
  13. COVERAM [Concomitant]
     Route: 048
     Dates: end: 201304

REACTIONS (5)
  - Pancreatitis acute [Recovered/Resolved]
  - Renal failure acute [Recovered/Resolved]
  - Abdominal pain upper [Recovered/Resolved]
  - Nausea [Recovered/Resolved]
  - Vomiting [Recovered/Resolved]
